FAERS Safety Report 7602772-1 (Version None)
Quarter: 2011Q3

REPORT INFORMATION
  Report Type: 
  Country: None (occurrence: None)
  Receive Date: 20110711
  Receipt Date: 20110711
  Transmission Date: 20111222
  Serious: Yes (Other)
  Sender: FDA-Public Use
  Company Number: None

PATIENT
  Sex: Female
  Weight: 68.2664 kg

DRUGS (2)
  1. VENLAFAXINE [Suspect]
     Indication: ANXIETY
     Dosage: 37.5  1 DLY ORAL - 047
     Route: 048
     Dates: start: 20110517
  2. VENLAFAXINE [Suspect]
     Indication: DEPRESSION
     Dosage: 37.5  1 DLY ORAL - 047
     Route: 048
     Dates: start: 20110517

REACTIONS (2)
  - DYSPHAGIA [None]
  - THROAT TIGHTNESS [None]
